FAERS Safety Report 5177863-8 (Version None)
Quarter: 2006Q4

REPORT INFORMATION
  Report Type: 
  Country: None (occurrence: None)
  Receive Date: 20061208
  Receipt Date: 20061128
  Transmission Date: 20070319
  Serious: Yes (Other)
  Sender: FDA-Public Use
  Company Number: 2006148194

PATIENT
  Sex: Male

DRUGS (2)
  1. LIPITOR [Suspect]
     Dosage: ORAL
     Route: 048
  2. FAMOTIDINE [Concomitant]

REACTIONS (2)
  - CARDIAC OPERATION [None]
  - TRANSAMINASES INCREASED [None]
